FAERS Safety Report 12724551 (Version 2)
Quarter: 2016Q4

REPORT INFORMATION
  Report Type: Spontaneous
  Country: CA (occurrence: CA)
  Receive Date: 20160908
  Receipt Date: 20161012
  Transmission Date: 20170207
  Serious: Yes (Other)
  Sender: FDA-Public Use
  Company Number: CA-PFIZER INC-2016416748

PATIENT
  Age: 57 Year
  Sex: Male
  Weight: 90.7 kg

DRUGS (4)
  1. SYNTHROID [Concomitant]
     Active Substance: LEVOTHYROXINE SODIUM
     Indication: HYPOTHYROIDISM
     Dosage: 0.2 MG, 1X/DAY
     Dates: start: 2002
  2. PANTOLOC /01263204/ [Concomitant]
     Active Substance: PANTOPRAZOLE SODIUM
     Indication: GASTROOESOPHAGEAL REFLUX DISEASE
     Dosage: 40 MG, 1X/DAY
     Dates: start: 2002
  3. CHAMPIX [Suspect]
     Active Substance: VARENICLINE TARTRATE
     Indication: SMOKING CESSATION THERAPY
     Dosage: UNK (PER PROTOCOL)
     Route: 048
     Dates: start: 20160527, end: 20160830
  4. ASA [Concomitant]
     Active Substance: ASPIRIN
     Indication: AORTIC ANEURYSM
     Dosage: 80 MG, 1X/DAY
     Dates: start: 2002

REACTIONS (1)
  - Diabetes mellitus [Unknown]

NARRATIVE: CASE EVENT DATE: 2016
